FAERS Safety Report 8850904 (Version 1)
Quarter: 2012Q4

REPORT INFORMATION
  Report Type: 
  Country: US (occurrence: US)
  Receive Date: 20121019
  Receipt Date: 20121019
  Transmission Date: 20130627
  Serious: No
  Sender: FDA-Public Use
  Company Number: US-PFIZER INC-2012256768

PATIENT
  Age: 75 Year
  Sex: Female

DRUGS (2)
  1. PREMPRO [Suspect]
     Indication: HOT FLUSH
     Dosage: 0.3/ 1.5 mg, 1x/day
     Route: 048
  2. PREMPRO [Suspect]
     Indication: MENOPAUSE

REACTIONS (1)
  - Alopecia [Unknown]
